FAERS Safety Report 25934929 (Version 1)
Quarter: 2025Q4

REPORT INFORMATION
  Report Type: Spontaneous
  Country: AU (occurrence: AU)
  Receive Date: 20251017
  Receipt Date: 20251017
  Transmission Date: 20260117
  Serious: Yes (Death)
  Sender: MYLAN
  Company Number: AU-MYLANLABS-2025M1088367

PATIENT
  Age: 42 Year
  Sex: Male

DRUGS (1)
  1. CLOZARIL [Suspect]
     Active Substance: CLOZAPINE
     Indication: Schizophrenia
     Dosage: 400 MILLIGRAM
     Dates: start: 20010712, end: 20251001

REACTIONS (1)
  - Death [Fatal]

NARRATIVE: CASE EVENT DATE: 20251003
